FAERS Safety Report 11319969 (Version 2)
Quarter: 2015Q3

REPORT INFORMATION
  Report Type: Report from Study
  Country: US (occurrence: US)
  Receive Date: 20150729
  Receipt Date: 20150731
  Transmission Date: 20151125
  Serious: Yes (Hospitalization, Other)
  Sender: FDA-Public Use
  Company Number: US-BIOGENIDEC-2015BI104034

PATIENT
  Age: 40 Year
  Sex: Female
  Weight: 96 kg

DRUGS (14)
  1. TECFIDERA [Suspect]
     Active Substance: DIMETHYL FUMARATE
     Indication: MULTIPLE SCLEROSIS
     Route: 048
     Dates: start: 20150301, end: 20150308
  2. ATIVAN [Concomitant]
     Active Substance: LORAZEPAM
  3. TECFIDERA [Suspect]
     Active Substance: DIMETHYL FUMARATE
     Indication: MULTIPLE SCLEROSIS
     Route: 048
     Dates: start: 20150308, end: 20150515
  4. ARICEPT [Concomitant]
     Active Substance: DONEPEZIL HYDROCHLORIDE
     Route: 048
  5. XANAX [Concomitant]
     Active Substance: ALPRAZOLAM
  6. LEVOTHYROXINE. [Concomitant]
     Active Substance: LEVOTHYROXINE
  7. ESGIC [Concomitant]
     Active Substance: ACETAMINOPHEN\BUTALBITAL\CAFFEINE
  8. TOPAMAX [Concomitant]
     Active Substance: TOPIRAMATE
     Route: 048
  9. PROVENTIL HFA [Concomitant]
     Active Substance: ALBUTEROL SULFATE
  10. ABILIFY [Concomitant]
     Active Substance: ARIPIPRAZOLE
  11. ZEBUTAL [Concomitant]
     Active Substance: ACETAMINOPHEN\BUTALBITAL\CAFFEINE
  12. FOLTX [Concomitant]
     Active Substance: CYANOCOBALAMIN CO-57\FOLIC ACID\PYRIDOXINE HYDROCHLORIDE
  13. TOPAMAX [Concomitant]
     Active Substance: TOPIRAMATE
     Route: 048
  14. ZOMIG ZMT [Concomitant]
     Active Substance: ZOLMITRIPTAN

REACTIONS (5)
  - Tachycardia [Recovered/Resolved with Sequelae]
  - Hot flush [Unknown]
  - Cerebrovascular accident [Recovered/Resolved with Sequelae]
  - Blood pressure increased [Unknown]
  - Dizziness [Recovered/Resolved with Sequelae]

NARRATIVE: CASE EVENT DATE: 201505
